FAERS Safety Report 10360159 (Version 2)
Quarter: 2014Q4

REPORT INFORMATION
  Report Type: Report from Study
  Country: CH (occurrence: CH)
  Receive Date: 20140804
  Receipt Date: 20141014
  Transmission Date: 20150528
  Serious: Yes (Other)
  Sender: FDA-Public Use
  Company Number: PHHY2014CH094235

PATIENT

DRUGS (2)
  1. LDK378 [Suspect]
     Active Substance: CERITINIB
     Indication: PRODUCT USED FOR UNKNOWN INDICATION
     Dosage: UNK
     Route: 065
     Dates: start: 20140611, end: 20140718
  2. LDK378 [Suspect]
     Active Substance: CERITINIB
     Dosage: 600 MG, DAILY
     Route: 065
     Dates: start: 20140827

REACTIONS (5)
  - Nausea [Recovered/Resolved]
  - Cholangitis [Recovered/Resolved]
  - Alanine aminotransferase increased [Recovered/Resolved]
  - Fatigue [Recovered/Resolved]
  - Gamma-glutamyltransferase increased [Recovered/Resolved]

NARRATIVE: CASE EVENT DATE: 20140625
